FAERS Safety Report 6944529-0 (Version None)
Quarter: 2010Q3

REPORT INFORMATION
  Report Type: 
  Country: None (occurrence: None)
  Receive Date: 20100827
  Receipt Date: 20100816
  Transmission Date: 20110219
  Serious: Yes (Other)
  Sender: FDA-Public Use
  Company Number: US-PFIZER INC-2010044571

PATIENT
  Sex: Male

DRUGS (4)
  1. CHANTIX [Suspect]
     Indication: SMOKING CESSATION THERAPY
     Dosage: CHANTIX STARTING MONTH
     Dates: start: 20071031
  2. OXYCODONE [Concomitant]
     Indication: ANALGESIC THERAPY
     Dosage: UNK
     Dates: start: 20060101, end: 20090101
  3. PROPECIA [Concomitant]
     Indication: ALOPECIA
     Dosage: UNK
     Dates: start: 20060101, end: 20100101
  4. LIPITOR [Concomitant]
     Indication: BLOOD CHOLESTEROL
     Dosage: UNK
     Dates: start: 20010101, end: 20100401

REACTIONS (8)
  - AGITATION [None]
  - ANXIETY [None]
  - DECREASED INTEREST [None]
  - DISTURBANCE IN ATTENTION [None]
  - IRRITABILITY [None]
  - MAJOR DEPRESSION [None]
  - MENTAL DISORDER [None]
  - SLEEP DISORDER [None]
